FAERS Safety Report 9657462 (Version 2)
Quarter: 2013Q4

REPORT INFORMATION
  Report Type: Spontaneous
  Country: US (occurrence: US)
  Receive Date: 20131030
  Receipt Date: 20131030
  Transmission Date: 20140711
  Serious: No
  Sender: FDA-Public Use
  Company Number: US-PURDUE-USA-2011-0076689

PATIENT
  Sex: Female

DRUGS (1)
  1. OXYCONTIN TABLETS [Suspect]
     Indication: PAIN
     Dosage: 40 MG, 6 TABLETS DAILY

REACTIONS (3)
  - Drug effect decreased [Unknown]
  - Pruritus [Unknown]
  - Constipation [Unknown]
